FAERS Safety Report 17201165 (Version 1)
Quarter: 2019Q4

REPORT INFORMATION
  Report Type: Spontaneous
  Country: US (occurrence: US)
  Receive Date: 20191203
  Receipt Date: 20191203
  Transmission Date: 20200122
  Serious: Yes (Life-Threatening, Disabling)
  Sender: FDA-Public Use
  Company Number: None

PATIENT
  Age: 64 Year

DRUGS (2)
  1. ELIQUIS [Suspect]
     Active Substance: APIXABAN
  2. ANDEXXA [Suspect]
     Active Substance: ANDEXANET ALFA
     Indication: PRODUCT USED FOR UNKNOWN INDICATION
     Route: 042
     Dates: start: 20190508

REACTIONS (4)
  - Cerebral ischaemia [None]
  - Gastrointestinal haemorrhage [None]
  - Brain death [None]
  - Tongue haemorrhage [None]

NARRATIVE: CASE EVENT DATE: 20190808
